FAERS Safety Report 5534369-1 (Version None)
Quarter: 2007Q4

REPORT INFORMATION
  Report Type: 
  Country: None (occurrence: None)
  Receive Date: 20071120
  Receipt Date: 20070828
  Transmission Date: 20080405
  Serious: Yes (Other)
  Sender: FDA-Public Use
  Company Number: HQWYE896829AUG07

PATIENT
  Sex: Male

DRUGS (1)
  1. ZOSYN [Suspect]
     Dates: start: 20070827

REACTIONS (1)
  - AGRANULOCYTOSIS [None]
